FAERS Safety Report 5545873-4 (Version None)
Quarter: 2007Q4

REPORT INFORMATION
  Report Type: 
  Country: None (occurrence: None)
  Receive Date: 20071211
  Receipt Date: 20070918
  Transmission Date: 20080405
  Serious: Yes (Other)
  Sender: FDA-Public Use
  Company Number: US-ASTRAZENECA-2007UW21987

PATIENT
  Age: 13 Year
  Sex: Female
  Weight: 71.7 kg

DRUGS (3)
  1. SYMBICORT [Suspect]
     Indication: ASTHMA
     Dosage: 160/4.5 UG
     Route: 055
     Dates: start: 20070913, end: 20070916
  2. TYLENOL [Concomitant]
  3. MOTRIN [Concomitant]

REACTIONS (5)
  - COUGH [None]
  - HEADACHE [None]
  - MUSCLE TWITCHING [None]
  - PHARYNGOLARYNGEAL PAIN [None]
  - TREMOR [None]
